FAERS Safety Report 7154942-7 (Version None)
Quarter: 2010Q4

REPORT INFORMATION
  Report Type: 
  Country: None (occurrence: None)
  Receive Date: 20101214
  Receipt Date: 20091117
  Transmission Date: 20110411
  Serious: No
  Sender: FDA-Public Use
  Company Number: US-AMGEN-KDL375201

PATIENT

DRUGS (1)
  1. ENBREL [Suspect]
     Indication: PSORIASIS
     Dosage: 50 MG, 2 TIMES/WK
     Route: 058
     Dates: start: 20090831, end: 20091112

REACTIONS (6)
  - DRUG INEFFECTIVE [None]
  - FEELING COLD [None]
  - INJECTION SITE PRURITUS [None]
  - INJECTION SITE RASH [None]
  - MALAISE [None]
  - PYREXIA [None]
